FAERS Safety Report 24245034 (Version 1)
Quarter: 2024Q3

REPORT INFORMATION
  Report Type: Spontaneous
  Country: IT (occurrence: IT)
  Receive Date: 20240823
  Receipt Date: 20240823
  Transmission Date: 20241016
  Serious: Yes (Other)
  Sender: NOVARTIS
  Company Number: IT-002147023-NVSC2024IT165131

PATIENT
  Age: 46 Year
  Sex: Male

DRUGS (6)
  1. DABRAFENIB [Suspect]
     Active Substance: DABRAFENIB
     Indication: Neuroendocrine carcinoma
     Dosage: 150 MG, BID
     Route: 065
     Dates: start: 202104, end: 2021
  2. DABRAFENIB [Suspect]
     Active Substance: DABRAFENIB
     Indication: Neuroendocrine carcinoma metastatic
  3. TRAMETINIB [Suspect]
     Active Substance: TRAMETINIB
     Indication: Neuroendocrine carcinoma
     Dosage: 2 MG, QD
     Route: 065
     Dates: start: 202104, end: 2021
  4. TRAMETINIB [Suspect]
     Active Substance: TRAMETINIB
     Indication: Neuroendocrine carcinoma metastatic
  5. IPILIMUMAB [Suspect]
     Active Substance: IPILIMUMAB
     Indication: Neuroendocrine carcinoma
     Dosage: 1 MG/KG
     Route: 065
     Dates: start: 202108, end: 2021
  6. NIVOLUMAB [Suspect]
     Active Substance: NIVOLUMAB
     Indication: Neuroendocrine carcinoma
     Dosage: 3 MG/KG
     Route: 065
     Dates: start: 202108, end: 2021

REACTIONS (3)
  - Neuroendocrine carcinoma [Unknown]
  - Malignant neoplasm progression [Unknown]
  - Off label use [Unknown]
